FAERS Safety Report 5384067-2 (Version None)
Quarter: 2007Q3

REPORT INFORMATION
  Report Type: 
  Country: None (occurrence: None)
  Receive Date: 20070711
  Receipt Date: 20070709
  Transmission Date: 20080115
  Serious: Yes (Hospitalization)
  Sender: FDA-Public Use
  Company Number: B0476524A

PATIENT
  Age: 47 Year
  Sex: Female

DRUGS (4)
  1. NIQUITIN CQ 4MG LOZENGE [Suspect]
     Indication: DRUG WITHDRAWAL MAINTENANCE THERAPY
     Route: 065
     Dates: start: 20070602, end: 20070602
  2. ASPIRIN [Concomitant]
  3. ZOCOR [Concomitant]
  4. ELTHYRONE [Concomitant]

REACTIONS (6)
  - ANGINA PECTORIS [None]
  - CHEST DISCOMFORT [None]
  - DYSPNOEA [None]
  - PHARMACEUTICAL PRODUCT COMPLAINT [None]
  - SENSORY DISTURBANCE [None]
  - VASOCONSTRICTION [None]
